FAERS Safety Report 6788710-2 (Version None)
Quarter: 2010Q2

REPORT INFORMATION
  Report Type: 
  Country: None (occurrence: None)
  Receive Date: 20100623
  Receipt Date: 20080519
  Transmission Date: 20101027
  Serious: No
  Sender: FDA-Public Use
  Company Number: US-PFIZER INC-2008044296

PATIENT
  Sex: Female
  Weight: 45.81 kg

DRUGS (24)
  1. DEPO-PROVERA SUSPENSION/INJ [Interacting]
     Indication: CONTRACEPTION
     Dosage: FREQUENCY: EVERY 3 MONTHS
     Route: 030
     Dates: start: 19930101, end: 20070201
  2. PROVIGIL [Suspect]
     Indication: MULTIPLE SCLEROSIS
     Dosage: QAM
     Route: 048
     Dates: start: 20050601, end: 20060901
  3. PROVIGIL [Suspect]
     Dosage: QAM
     Route: 048
     Dates: start: 20061001, end: 20071001
  4. PROVIGIL [Suspect]
     Dosage: QAM
     Route: 048
     Dates: start: 20071001, end: 20080101
  5. PROVIGIL [Suspect]
     Route: 048
     Dates: start: 20080101, end: 20080301
  6. PROVIGIL [Suspect]
     Dosage: QAM
     Route: 048
     Dates: start: 20080301
  7. PROVIGIL [Suspect]
     Dosage: QAM
     Route: 048
     Dates: end: 20080429
  8. PROVIGIL [Suspect]
     Dosage: QAM
     Route: 048
     Dates: start: 20080430
  9. ORTHO EVRA [Suspect]
     Indication: CONTRACEPTION
     Dosage: QMON
     Route: 062
     Dates: start: 20070501, end: 20070701
  10. COPAXONE [Concomitant]
     Dates: start: 20050301, end: 20080101
  11. ZANAFLEX [Concomitant]
     Dates: start: 20060101
  12. NEURONTIN [Concomitant]
     Dates: start: 20070101
  13. VITAMIN B-12 [Concomitant]
     Dates: start: 20040101
  14. MIRENA [Concomitant]
     Dates: start: 20070701
  15. DIVIGEL [Concomitant]
     Dates: start: 20071201
  16. ANDROGEL [Concomitant]
     Dates: start: 20080101
  17. DIFLUCAN [Concomitant]
     Dates: start: 20060101
  18. RETIN-A [Concomitant]
     Dates: start: 19980101
  19. FEMTRACE [Concomitant]
     Dates: start: 20070101, end: 20070101
  20. ESTROTEST [Concomitant]
     Dates: start: 20070101, end: 20070101
  21. VAGIFEM [Concomitant]
     Dates: start: 20070101, end: 20070101
  22. TESTOSTERONE [Concomitant]
     Dates: start: 20050101, end: 20080101
  23. TEMAZEPAM [Concomitant]
     Dates: start: 20060101
  24. KLONOPIN [Concomitant]
     Dates: start: 20071101, end: 20071201

REACTIONS (6)
  - CHEST PAIN [None]
  - DECREASED APPETITE [None]
  - DRUG INTERACTION [None]
  - OVULATION DISORDER [None]
  - VAGINAL INFECTION [None]
  - WEIGHT DECREASED [None]
